FAERS Safety Report 7152194-5 (Version None)
Quarter: 2010Q4

REPORT INFORMATION
  Report Type: 
  Country: None (occurrence: None)
  Receive Date: 20101123
  Receipt Date: 20101113
  Transmission Date: 20110411
  Serious: Yes (Other)
  Sender: FDA-Public Use
  Company Number: 2010SP060135

PATIENT
  Age: 38 Year
  Sex: Female

DRUGS (2)
  1. PUREGON (FOLLITROPIN BETA /01348901/) [Suspect]
     Indication: OVULATION INDUCTION
  2. OVITRELLE [Concomitant]

REACTIONS (2)
  - HYPOTENSION [None]
  - MALAISE [None]
